FAERS Safety Report 8591492-5 (Version None)
Quarter: 2012Q3

REPORT INFORMATION
  Report Type: 
  Country: None (occurrence: None)
  Receive Date: 20120814
  Receipt Date: 20120731
  Transmission Date: 20120928
  Serious: Yes (Death, Hospitalization)
  Sender: FDA-Public Use
  Company Number: US-RANBAXY-2012US-58792

PATIENT
  Age: 39 Year
  Sex: Female

DRUGS (5)
  1. FLUCONAZOLE [Suspect]
     Indication: PNEUMONIA CRYPTOCOCCAL
     Dosage: UNK
     Route: 048
  2. ITRACONAZOLE [Suspect]
     Indication: PNEUMONIA CRYPTOCOCCAL
     Dosage: UNK
     Route: 065
  3. FLUCONAZOLE [Suspect]
     Dosage: UNK
     Route: 048
  4. FLUCONAZOLE [Suspect]
     Indication: IMMUNE TOLERANCE INDUCTION
     Dosage: UNK
     Route: 048
  5. FLUCONAZOLE [Suspect]
     Dosage: UNK
     Route: 048

REACTIONS (3)
  - PRURITUS [None]
  - RASH PRURITIC [None]
  - URTICARIA [None]
